FAERS Safety Report 19455996 (Version 1)
Quarter: 2021Q2

REPORT INFORMATION
  Report Type: Spontaneous
  Country: US (occurrence: US)
  Receive Date: 20210624
  Receipt Date: 20210624
  Transmission Date: 20210717
  Serious: No
  Sender: FDA-Public Use
  Company Number: None

PATIENT
  Age: 64 Year
  Sex: Male

DRUGS (2)
  1. LORAZEPAM (LORAZEPAM 2MG/ML INJ) [Suspect]
     Active Substance: LORAZEPAM
     Indication: DELIRIUM
     Route: 042
     Dates: start: 20210226, end: 20210301
  2. DEXMEDETOMIDINE (DEXMEDETOMIDINE HCL 100MCG/ML INJ0 [Suspect]
     Active Substance: DEXMEDETOMIDINE HYDROCHLORIDE
     Indication: DELIRIUM
     Dosage: ?          OTHER STRENGTH:100 UG/ML;?
     Route: 042
     Dates: start: 20210226, end: 20210227

REACTIONS (4)
  - Respiratory arrest [None]
  - Hypercapnia [None]
  - Cardiac arrest [None]
  - Respiratory depression [None]

NARRATIVE: CASE EVENT DATE: 20210227
